FAERS Safety Report 9718606 (Version 1)
Quarter: 2013Q4

REPORT INFORMATION
  Report Type: Spontaneous
  Country: US (occurrence: US)
  Receive Date: 20131127
  Receipt Date: 20131127
  Transmission Date: 20140711
  Serious: Yes (Death, Other)
  Sender: FDA-Public Use
  Company Number: US-009507513-1311USA011238

PATIENT
  Sex: Female

DRUGS (1)
  1. LOTRIMIN AF LIQUID SPRAY [Suspect]
     Indication: SKIN DISORDER
     Dosage: UNK, UNKNOWN
     Route: 061

REACTIONS (2)
  - Death [Fatal]
  - Off label use [Unknown]
